FAERS Safety Report 6591235-0 (Version None)
Quarter: 2010Q1

REPORT INFORMATION
  Report Type: 
  Country: None (occurrence: None)
  Receive Date: 20100219
  Receipt Date: 20100212
  Transmission Date: 20100710
  Serious: Yes (Hospitalization)
  Sender: FDA-Public Use
  Company Number: PHHO2010DE02457

PATIENT
  Sex: Female
  Weight: 59.5 kg

DRUGS (2)
  1. SANDOSTATIN [Suspect]
     Indication: THYMOMA
     Dosage: 30 MG/ 2 WEEKS
     Route: 030
     Dates: start: 20091120, end: 20091228
  2. PREDNISOLON [Concomitant]
     Dosage: 30 MG
     Route: 048

REACTIONS (6)
  - LISTERIOSIS [None]
  - LOSS OF CONSCIOUSNESS [None]
  - LUNG DISORDER [None]
  - MENINGITIS [None]
  - PYREXIA [None]
  - SEPSIS [None]
